FAERS Safety Report 20795620 (Version 1)
Quarter: 2022Q2

REPORT INFORMATION
  Report Type: Spontaneous
  Country: ES (occurrence: ES)
  Receive Date: 20220506
  Receipt Date: 20220506
  Transmission Date: 20220721
  Serious: Yes (Hospitalization, Other)
  Sender: FDA-Public Use
  Company Number: ES-SA-SAC20220502001323

PATIENT
  Sex: Male
  Weight: 60 kg

DRUGS (3)
  1. LANTUS SOLOSTAR [Suspect]
     Active Substance: INSULIN GLARGINE
     Indication: Type 2 diabetes mellitus
     Route: 058
  2. TOUJEO [Suspect]
     Active Substance: INSULIN GLARGINE
  3. TOUJEO [Suspect]
     Active Substance: INSULIN GLARGINE
     Dosage: UNK, Q3D

REACTIONS (15)
  - Diabetic ketoacidosis [Recovered/Resolved]
  - Weight decreased [Recovering/Resolving]
  - Memory impairment [Recovering/Resolving]
  - Product dose omission issue [Unknown]
  - Infection [Recovering/Resolving]
  - Hyperglycaemia [Recovering/Resolving]
  - Blood glucose increased [Recovering/Resolving]
  - Thirst [Recovering/Resolving]
  - Pollakiuria [Recovering/Resolving]
  - Visual impairment [Unknown]
  - Blood glucose decreased [Recovering/Resolving]
  - Sluggishness [Recovering/Resolving]
  - Cardiac disorder [Recovering/Resolving]
  - Product storage error [Unknown]
  - Product use issue [Unknown]
